FAERS Safety Report 5742993-6 (Version None)
Quarter: 2008Q2

REPORT INFORMATION
  Report Type: 
  Country: None (occurrence: None)
  Receive Date: 20080519
  Receipt Date: 20080507
  Transmission Date: 20081010
  Serious: Yes (Death, Hospitalization)
  Sender: FDA-Public Use
  Company Number: DE-ROCHE-550914

PATIENT
  Sex: Male
  Weight: 85 kg

DRUGS (7)
  1. XELODA [Suspect]
     Indication: COLORECTAL CANCER
     Dosage: FOR 1500 MG/M2, FREQUENCY REPORTED AS D2-D15.  FOR 2000 MG/M2, FREQUENCY REPORTED AS D1-D14.
     Route: 048
     Dates: start: 20080103, end: 20080227
  2. IRINOTECAN HCL [Suspect]
     Indication: COLORECTAL CANCER
     Dosage: FREQUENCY REPORTED AS D1,D8.
     Route: 042
     Dates: start: 20080103, end: 20080227
  3. OMEPRAZOLE [Concomitant]
     Dates: end: 20080227
  4. FERRO SANOL DUODENAL [Concomitant]
     Dosage: FREQUENCY REPORTED AS 3X1.
     Dates: end: 20080227
  5. LYRICA [Concomitant]
     Dosage: FREQUENCY REPORTED AS 2X1.
     Dates: end: 20080227
  6. TRIMIPRAMINE MALEATE [Concomitant]
     Dates: end: 20080227
  7. NOVALDIN INJ [Concomitant]
     Dates: end: 20080227

REACTIONS (2)
  - GASTROINTESTINAL DISORDER [None]
  - PULMONARY EMBOLISM [None]
